FAERS Safety Report 4674280-1 (Version None)
Quarter: 2005Q2

REPORT INFORMATION
  Report Type: 
  Country: None (occurrence: None)
  Receive Date: 20050524
  Receipt Date: 20050509
  Transmission Date: 20051028
  Serious: Yes (Other)
  Sender: FDA-Public Use
  Company Number: USA040773374

PATIENT
  Age: 70 Year
  Sex: Female
  Weight: 70 kg

DRUGS (15)
  1. FORTEO [Suspect]
     Indication: INTERVERTEBRAL DISC DISORDER
     Dosage: 20 UG/1 DAY
     Dates: start: 20040611, end: 20040727
  2. FORTEO [Suspect]
     Indication: POSITRON EMISSION TOMOGRAM ABNORMAL
     Dosage: 20 UG/1 DAY
     Dates: start: 20040611, end: 20040727
  3. NEURONTIN [Concomitant]
  4. GLIPIZIDE [Concomitant]
  5. METFORMIN [Concomitant]
  6. PLAVIX [Concomitant]
  7. PLETAL [Concomitant]
  8. CRESTOR [Concomitant]
  9. OMEPRAZOLE [Concomitant]
  10. LORAZEPAM [Concomitant]
  11. DIPHENOXYLATE [Concomitant]
  12. AMITRIPTYLINE [Concomitant]
  13. VITAMIN B COMPLEX CAP [Concomitant]
  14. VITAMIN D [Concomitant]
  15. CALCIUM GLUCONATE [Concomitant]

REACTIONS (16)
  - ARTHRALGIA [None]
  - BACK PAIN [None]
  - CONDITION AGGRAVATED [None]
  - ERYTHEMA [None]
  - FALL [None]
  - FEELING ABNORMAL [None]
  - HEADACHE [None]
  - MOVEMENT DISORDER [None]
  - NEOPLASM SKIN [None]
  - OEDEMA PERIPHERAL [None]
  - PAIN [None]
  - PAIN IN EXTREMITY [None]
  - PHARMACEUTICAL PRODUCT COMPLAINT [None]
  - REFUSAL OF TREATMENT BY PATIENT [None]
  - THERAPEUTIC RESPONSE UNEXPECTED [None]
  - VASOCONSTRICTION [None]
